FAERS Safety Report 25148406 (Version 2)
Quarter: 2025Q2

REPORT INFORMATION
  Report Type: Spontaneous
  Country: JP (occurrence: JP)
  Receive Date: 20250402
  Receipt Date: 20250619
  Transmission Date: 20250717
  Serious: Yes (Other)
  Sender: ROCHE
  Company Number: JP-CHUGAI-2025009826

PATIENT
  Age: 83 Year
  Sex: Female

DRUGS (2)
  1. CELLCEPT [Suspect]
     Active Substance: MYCOPHENOLATE MOFETIL
     Indication: Polymyositis
     Route: 050
  2. PREDONINE [Concomitant]
     Active Substance: PREDNISOLONE
     Indication: Polymyositis
     Route: 050

REACTIONS (4)
  - Urinary retention [Unknown]
  - Herpes zoster [Unknown]
  - Hydronephrosis [Unknown]
  - Off label use [Unknown]
